FAERS Safety Report 8389737-X (Version None)
Quarter: 2012Q2

REPORT INFORMATION
  Report Type: 
  Country: None (occurrence: None)
  Receive Date: 20120524
  Receipt Date: 20120524
  Transmission Date: 20120825
  Serious: Yes (Hospitalization)
  Sender: FDA-Public Use
  Company Number: None

PATIENT
  Sex: Female
  Weight: 77.1115 kg

DRUGS (2)
  1. LISINOPRIL [Suspect]
     Indication: BLOOD PRESSURE
     Dosage: 20MG 1 EVERY DAY DAILY
  2. ATENOLOL AND CHLORTHALIDONE [Suspect]
     Dosage: 25MG 1 EVERY DAY DAILY

REACTIONS (3)
  - AMNESIA [None]
  - DECREASED APPETITE [None]
  - BLOOD PRESSURE INCREASED [None]
